FAERS Safety Report 4672799-0 (Version None)
Quarter: 2005Q2

REPORT INFORMATION
  Report Type: 
  Country: None (occurrence: None)
  Receive Date: 20050523
  Receipt Date: 20050510
  Transmission Date: 20051028
  Serious: Yes (Life-Threatening, Other)
  Sender: FDA-Public Use
  Company Number: HQWYE881007JUL03

PATIENT
  Age: 79 Year
  Sex: Female

DRUGS (3)
  1. TRANGOREX           (AMIODARONE) [Suspect]
     Indication: ATRIAL FIBRILLATION
     Dosage: 400 MG 1X PER 1 DAY, ORAL
     Route: 048
     Dates: start: 20011020, end: 20020609
  2. TRANGOREX           (AMIODARONE) [Suspect]
     Indication: ATRIAL FLUTTER
     Dosage: 400 MG 1X PER 1 DAY, ORAL
     Route: 048
     Dates: start: 20011020, end: 20020609
  3. DILTIAZEM HYDROCHLORIDE [Suspect]
     Indication: MYOCARDIAL ISCHAEMIA
     Dosage: 180 MG 1X PER 1 DAY, ORAL
     Route: 048
     Dates: start: 20020606, end: 20020609

REACTIONS (4)
  - ACUTE PULMONARY OEDEMA [None]
  - BRADYARRHYTHMIA [None]
  - BUNDLE BRANCH BLOCK LEFT [None]
  - DRUG INTERACTION [None]
